FAERS Safety Report 4507236-X (Version None)
Quarter: 2004Q4

REPORT INFORMATION
  Report Type: 
  Country: None (occurrence: None)
  Receive Date: 20041116
  Receipt Date: 20040629
  Transmission Date: 20050328
  Serious: Yes (Death, Hospitalization)
  Sender: FDA-Public Use
  Company Number: 800189

PATIENT
  Age: 42 Year
  Sex: Male
  Weight: 90.7194 kg

DRUGS (3)
  1. DIANEAL [Suspect]
     Indication: PERITONEAL DIALYSIS
     Dosage: INTRAPERITONEAL
     Route: 033
     Dates: start: 20040414
  2. HOME CHOICE AUTOMATED PD SET [Concomitant]
  3. CAPD TRANSFER SET [Concomitant]

REACTIONS (8)
  - ABDOMINAL PAIN [None]
  - CONFUSIONAL STATE [None]
  - DEVICE FAILURE [None]
  - NAUSEA [None]
  - PERITONITIS [None]
  - PYREXIA [None]
  - SEPSIS [None]
  - VOMITING [None]
